FAERS Safety Report 5919228-4 (Version None)
Quarter: 2008Q4

REPORT INFORMATION
  Report Type: 
  Country: None (occurrence: None)
  Receive Date: 20081015
  Receipt Date: 20080924
  Transmission Date: 20090506
  Serious: Yes (Hospitalization)
  Sender: FDA-Public Use
  Company Number: NL-AMGEN-US209124

PATIENT
  Age: 57 Year
  Sex: Male
  Weight: 83 kg

DRUGS (10)
  1. ENBREL [Suspect]
     Indication: PSORIASIS
     Dosage: LYOPHILISED: 25 MG 2 TIMES PER WEEK
     Dates: start: 20050318
  2. ENBREL [Suspect]
     Dosage: LYOPHILISED: 25 MG 2 TIMES PER WEEK
     Dates: start: 20060607, end: 20080831
  3. ENBREL [Suspect]
     Dosage: PFS: 50 MG 2 TIMES PER WEEK
     Dates: start: 20080901
  4. NOVAMET [Concomitant]
     Dosage: 160 IU - MORNING + 80 IU - EVENING
     Dates: end: 20061019
  5. TOLBUTAMIDE [Concomitant]
     Dates: start: 20061103
  6. ENALAPRIL MALEATE [Concomitant]
     Dates: start: 20010101
  7. METFORMIN [Concomitant]
     Dates: start: 20010101
  8. METFORMIN [Concomitant]
  9. DIOVAN [Concomitant]
     Dates: start: 20010101
  10. CYPRESS/EQUISETUM/GARLIC/HIPPOCASTANI SEMEN/MAGNESIUM THIOSULFATE/MIST [Concomitant]
     Dates: start: 20010101, end: 20061019

REACTIONS (19)
  - ABDOMINAL PAIN [None]
  - ALCOHOL ABUSE [None]
  - BLOOD ALCOHOL INCREASED [None]
  - BLOOD PRESSURE INCREASED [None]
  - DECREASED APPETITE [None]
  - DIABETES MELLITUS INADEQUATE CONTROL [None]
  - DIZZINESS [None]
  - DRUG TOXICITY [None]
  - DYSPNOEA [None]
  - ERUCTATION [None]
  - FEELING DRUNK [None]
  - GAMMA-GLUTAMYLTRANSFERASE INCREASED [None]
  - HEPATIC STEATOSIS [None]
  - HEPATOTOXICITY [None]
  - MALAISE [None]
  - NAUSEA [None]
  - NOCTURIA [None]
  - OEDEMA [None]
  - ORTHOPNOEA [None]
